FAERS Safety Report 16342822 (Version 1)
Quarter: 2019Q2

REPORT INFORMATION
  Report Type: Spontaneous
  Country: US (occurrence: US)
  Receive Date: 20190521
  Receipt Date: 20190521
  Transmission Date: 20190711
  Serious: Yes (Other)
  Sender: FDA-Public Use
  Company Number: None

PATIENT
  Age: 79 Year
  Sex: Male
  Weight: 103.6 kg

DRUGS (14)
  1. DOXYCYCLINE. [Concomitant]
     Active Substance: DOXYCYCLINE
  2. IBUPROFEN. [Concomitant]
     Active Substance: IBUPROFEN
  3. CARBIDOPA-LEVODOPA [Concomitant]
     Active Substance: CARBIDOPA\LEVODOPA
  4. QUETIAPINE. [Concomitant]
     Active Substance: QUETIAPINE
  5. CELECOXIB. [Concomitant]
     Active Substance: CELECOXIB
  6. FLUDRICORTISONE [Concomitant]
  7. MIRABEGRON [Concomitant]
     Active Substance: MIRABEGRON
  8. ACETAMINOPHEN. [Concomitant]
     Active Substance: ACETAMINOPHEN
  9. DUTASIRIDE-TAMSULOSIN [Concomitant]
  10. MEMANTINE. [Concomitant]
     Active Substance: MEMANTINE
  11. DONEPEZIL. [Concomitant]
     Active Substance: DONEPEZIL
  12. MIDODRINE [Concomitant]
     Active Substance: MIDODRINE
  13. BUPIVACAINE. [Suspect]
     Active Substance: BUPIVACAINE
     Indication: SPINAL ANAESTHESIA
     Dosage: ?          OTHER FREQUENCY:ONCE;?
     Route: 037
     Dates: start: 20190517, end: 20190517
  14. BUPIVACAINE 0.5% [Concomitant]
     Active Substance: BUPIVACAINE
     Dates: start: 20190517, end: 20190517

REACTIONS (2)
  - Anaesthetic complication [None]
  - Drug ineffective [None]

NARRATIVE: CASE EVENT DATE: 20190517
